FAERS Safety Report 4902354-6 (Version None)
Quarter: 2006Q1

REPORT INFORMATION
  Report Type: 
  Country: None (occurrence: None)
  Receive Date: 20060207
  Receipt Date: 20051130
  Transmission Date: 20060701
  Serious: Yes (Hospitalization)
  Sender: FDA-Public Use
  Company Number: PHBS2005JP17650

PATIENT
  Age: 66 Year
  Sex: Female

DRUGS (3)
  1. FASTIC [Suspect]
     Indication: DIABETES MELLITUS
     Dosage: 270 MG/DAY
     Route: 048
     Dates: start: 20020701, end: 20020819
  2. DAONIL [Suspect]
     Indication: DIABETES MELLITUS
     Dosage: 3.75 MG, TID
     Route: 048
     Dates: start: 20020715, end: 20020822
  3. STARSIS [Suspect]
     Indication: DIABETES MELLITUS
     Dosage: UNK, UNK
     Dates: start: 20020819, end: 20050822

REACTIONS (8)
  - ACUTE RESPIRATORY DISTRESS SYNDROME [None]
  - ANTINUCLEAR ANTIBODY POSITIVE [None]
  - COUGH [None]
  - DYSPNOEA [None]
  - HERPES ZOSTER [None]
  - HYPOXIA [None]
  - INTERSTITIAL LUNG DISEASE [None]
  - PNEUMONIA [None]
